FAERS Safety Report 4293368-0 (Version None)
Quarter: 2004Q1

REPORT INFORMATION
  Report Type: 
  Country: None (occurrence: None)
  Receive Date: 20040210
  Receipt Date: 20040202
  Transmission Date: 20041129
  Serious: Yes (Other)
  Sender: FDA-Public Use
  Company Number: US-JNJFOC-20040200827

PATIENT
  Age: 9 Year
  Sex: Male
  Weight: 29.0302 kg

DRUGS (1)
  1. CONCERTA [Suspect]
     Indication: ATTENTION DEFICIT/HYPERACTIVITY DISORDER
     Dosage: 18 MG, 1 IN 1 DAY, ORAL
     Route: 048
     Dates: start: 20040201, end: 20040201

REACTIONS (8)
  - ANXIETY [None]
  - CRYING [None]
  - DEPRESSED MOOD [None]
  - FEAR [None]
  - INSOMNIA [None]
  - NERVOUSNESS [None]
  - SPEECH DISORDER [None]
  - SUICIDAL IDEATION [None]
